FAERS Safety Report 9524233 (Version 1)
Quarter: 2013Q3

REPORT INFORMATION
  Report Type: Spontaneous
  Country: US (occurrence: US)
  Receive Date: 20130916
  Receipt Date: 20130916
  Transmission Date: 20140515
  Serious: Yes (Hospitalization, Other)
  Sender: FDA-Public Use
  Company Number: US-TEVA-431348USA

PATIENT
  Age: 36 Year
  Sex: Female

DRUGS (3)
  1. PROVIGIL [Suspect]
  2. SAMPLE MEDICATION [Interacting]
  3. COPAXONE [Concomitant]
     Indication: MULTIPLE SCLEROSIS
     Dates: start: 20130202

REACTIONS (2)
  - Drug interaction [Recovered/Resolved]
  - Loss of consciousness [Recovered/Resolved]
